FAERS Safety Report 4597416-X (Version None)
Quarter: 2005Q1

REPORT INFORMATION
  Report Type: 
  Country: None (occurrence: None)
  Receive Date: 20050228
  Receipt Date: 20050228
  Transmission Date: 20050727
  Serious: No
  Sender: FDA-Public Use
  Company Number: None

PATIENT
  Sex: Female
  Weight: 62.5964 kg

DRUGS (5)
  1. OXYCONTIN [Suspect]
     Indication: BACK PAIN
     Dosage: 80 MG 2 PO Q 12 H
     Route: 048
     Dates: start: 20021101
  2. OXYCONTIN [Suspect]
     Indication: MULTIPLE SCLEROSIS
     Dosage: 80 MG 2 PO Q 12 H
     Route: 048
     Dates: start: 20021101
  3. COPAXONE [Concomitant]
  4. LEXAPRO [Concomitant]
  5. CLONAZEPAM [Concomitant]

REACTIONS (3)
  - DIARRHOEA [None]
  - DRUG EFFECT DECREASED [None]
  - PHARMACEUTICAL PRODUCT COMPLAINT [None]
